FAERS Safety Report 14037204 (Version 6)
Quarter: 2020Q4

REPORT INFORMATION
  Report Type: Report from Study
  Country: US (occurrence: US)
  Receive Date: 20171004
  Receipt Date: 20201021
  Transmission Date: 20210113
  Serious: Yes (Other)
  Sender: FDA-Public Use
  Company Number: US-AMGEN-USASL2017100386

PATIENT
  Age: 69 Year
  Sex: Male
  Weight: 69.58 kg

DRUGS (10)
  1. DEXILANT [Concomitant]
     Active Substance: DEXLANSOPRAZOLE
     Dosage: 1 CAP QD BY ORAL ROUTE FOR 56 DAYS
     Route: 048
     Dates: start: 20170725
  2. THYROID [Concomitant]
     Active Substance: LEVOTHYROXINE\LIOTHYRONINE
     Dosage: 135 MILLIGRAM, QD
     Dates: start: 20170725
  3. PERCOCET [Concomitant]
     Active Substance: ACETAMINOPHEN\OXYCODONE HYDROCHLORIDE
     Indication: BACK INJURY
  4. PERCOCET [Concomitant]
     Active Substance: ACETAMINOPHEN\OXYCODONE HYDROCHLORIDE
     Dosage: 5MG-325 MG
     Route: 048
     Dates: start: 20180425
  5. REPATHA [Suspect]
     Active Substance: EVOLOCUMAB
     Indication: ARTERIOSCLEROSIS
     Dosage: 140 MILLIGRAM, Q2WK
     Route: 058
  6. PRAVASTATIN. [Concomitant]
     Active Substance: PRAVASTATIN
     Dosage: 40 MILLIGRAM, QD
     Route: 048
     Dates: start: 20181029
  7. REPATHA [Suspect]
     Active Substance: EVOLOCUMAB
     Indication: LOW DENSITY LIPOPROTEIN INCREASED
     Dosage: 140 MG, Q2WK
     Route: 058
     Dates: start: 201709, end: 201709
  8. REPATHA [Suspect]
     Active Substance: EVOLOCUMAB
     Indication: HYPERCHOLESTEROLAEMIA
     Dosage: 140 MILLIGRAM PER MILLILITRE, Q2WK
     Route: 058
     Dates: start: 20190401
  9. ADVAIR HFA [Concomitant]
     Active Substance: FLUTICASONE PROPIONATE\SALMETEROL XINAFOATE
     Dosage: 250 MCG-50 MCGTDOSE POWDER FOR INHALATION, 1-2 TIMES DAILY
     Dates: start: 20140606
  10. CLOPIDOGREL [Concomitant]
     Active Substance: CLOPIDOGREL BISULFATE
     Dosage: 75 MILLIGRAM, ONE TABLET BY MOUTH DAILY
     Route: 048
     Dates: start: 20190213

REACTIONS (14)
  - Choking [Unknown]
  - Injection site discolouration [Recovering/Resolving]
  - Headache [Unknown]
  - Wheezing [Unknown]
  - Myalgia [Unknown]
  - Dyspnoea [Not Recovered/Not Resolved]
  - Blood pressure increased [Unknown]
  - Pain [Unknown]
  - Back pain [Not Recovered/Not Resolved]
  - Respiratory tract congestion [Recovered/Resolved]
  - Sleep disorder due to a general medical condition [Unknown]
  - Injection site pain [Unknown]
  - Pain in extremity [Recovered/Resolved]
  - Nasopharyngitis [Unknown]

NARRATIVE: CASE EVENT DATE: 2017
